FAERS Safety Report 4364917-9 (Version None)
Quarter: 2004Q2

REPORT INFORMATION
  Report Type: 
  Country: None (occurrence: None)
  Receive Date: 20040520
  Receipt Date: 20030425
  Transmission Date: 20050107
  Serious: Yes (Other)
  Sender: FDA-Public Use
  Company Number: HQWYE923228APR03

PATIENT
  Sex: Female

DRUGS (1)
  1. ALESSE [Suspect]
     Dosage: ORAL
     Route: 048
     Dates: start: 20010401, end: 20030404

REACTIONS (2)
  - PANCREATITIS [None]
  - RASH [None]
